FAERS Safety Report 15647444 (Version 3)
Quarter: 2018Q4

REPORT INFORMATION
  Report Type: Spontaneous
  Country: GR (occurrence: GR)
  Receive Date: 20181122
  Receipt Date: 20181212
  Transmission Date: 20190205
  Serious: Yes (Hospitalization)
  Sender: FDA-Public Use
  Company Number: GR-CELLTRION INC.-2018GR023937

PATIENT

DRUGS (2)
  1. INFLIXIMAB PFIZER (UNKNOWN) [Suspect]
     Active Substance: INFLIXIMAB
     Indication: INFLAMMATORY BOWEL DISEASE
     Route: 065
  2. RAPAMYCIN [Suspect]
     Active Substance: SIROLIMUS
     Indication: INFLAMMATORY BOWEL DISEASE
     Dosage: UNK
     Route: 065

REACTIONS (3)
  - Therapeutic response decreased [Unknown]
  - Product use in unapproved indication [Unknown]
  - Hypoalbuminaemia [Unknown]
